FAERS Safety Report 5668939-7 (Version None)
Quarter: 2008Q1

REPORT INFORMATION
  Report Type: 
  Country: None (occurrence: None)
  Receive Date: 20080317
  Receipt Date: 20080310
  Transmission Date: 20080703
  Serious: Yes (Other)
  Sender: FDA-Public Use
  Company Number: JP-SANOFI-SYNTHELABO-F01200701095

PATIENT
  Sex: Male

DRUGS (14)
  1. ANTEBATE [Concomitant]
     Dosage: UNK
     Dates: start: 20070825, end: 20070831
  2. INTRALIPID 10% [Concomitant]
     Dosage: UNK
     Dates: start: 20070824, end: 20070824
  3. TIENAM [Concomitant]
     Dosage: UNK
     Dates: start: 20070822, end: 20070826
  4. FULCALIQ NO. 3 [Concomitant]
     Dosage: UNK
     Dates: start: 20070822, end: 20070904
  5. SOLDEM [Concomitant]
     Dosage: UNK
     Dates: start: 20070820, end: 20070820
  6. CYTOTEC [Concomitant]
     Dosage: UNK
     Dates: start: 20070702, end: 20080130
  7. ISOVORIN [Suspect]
     Route: 042
     Dates: start: 20070814, end: 20070815
  8. LOXONIN [Concomitant]
     Dosage: UNK
     Dates: start: 20070721
  9. FLUOROURACIL [Suspect]
     Route: 042
     Dates: start: 20070814, end: 20070815
  10. FERROMIA [Concomitant]
     Dosage: UNK
     Dates: start: 20070718, end: 20080129
  11. BEVACIZUMAB [Suspect]
     Route: 042
     Dates: start: 20070814, end: 20070814
  12. BIO-THREE [Concomitant]
     Dosage: UNK
     Dates: start: 20070701, end: 20080129
  13. OXALIPLATIN [Suspect]
     Indication: COLON CANCER METASTATIC
     Route: 042
     Dates: start: 20070814, end: 20070814
  14. HIRUDOID [Concomitant]
     Dosage: UNK
     Dates: start: 20070817, end: 20070831

REACTIONS (1)
  - FALL [None]
